FAERS Safety Report 6505941-7 (Version None)
Quarter: 2009Q4

REPORT INFORMATION
  Report Type: 
  Country: None (occurrence: None)
  Receive Date: 20091218
  Receipt Date: 20091211
  Transmission Date: 20100525
  Serious: Yes (Other)
  Sender: FDA-Public Use
  Company Number: US-MERCK-0912USA01927

PATIENT
  Age: 56 Year
  Sex: Male

DRUGS (2)
  1. DECADRON [Suspect]
     Indication: MULTIPLE MYELOMA
     Route: 048
  2. THALIDOMIDE [Suspect]
     Route: 065

REACTIONS (1)
  - PULMONARY EMBOLISM [None]
